FAERS Safety Report 10748881 (Version 2)
Quarter: 2015Q2

REPORT INFORMATION
  Report Type: Report from Study
  Country: US (occurrence: None)
  Receive Date: 20150120
  Receipt Date: 20150420
  Transmission Date: 20150821
  Serious: Yes (Other)
  Sender: FDA-Public Use
  Company Number: AEGR000940

PATIENT
  Age: 53 Year
  Sex: Male
  Weight: 98.9 kg

DRUGS (20)
  1. JANUVIA [Concomitant]
     Active Substance: SITAGLIPTIN PHOSPHATE
  2. NIACIN (NICOTINIC ACID) [Concomitant]
  3. PROAIR HFA [Concomitant]
     Active Substance: ALBUTEROL SULFATE
  4. JUXTAPID [Suspect]
     Active Substance: LOMITAPIDE MESYLATE
     Indication: TYPE IIA HYPERLIPIDAEMIA
     Route: 048
     Dates: start: 20140109, end: 20140310
  5. AFRIN (OXYMETAZOLINE HYDROCHLORIDE) [Concomitant]
  6. AMLODIPINE BESYLATE (AMLODIPINE BESYLATE) [Concomitant]
  7. CELEBREX [Concomitant]
     Active Substance: CELECOXIB
  8. L-CARNITINE (L-CARNITINE) [Concomitant]
  9. PANTOPRAZOLE SODIUM (PANTOPRAZOLE SODIUM) [Concomitant]
  10. FLUTICASONE PROPIONATE (FLUTICASONE PROPIONATE) [Concomitant]
  11. ZETIA [Concomitant]
     Active Substance: EZETIMIBE
  12. ANDROGEL [Concomitant]
     Active Substance: TESTOSTERONE
  13. GABAPENTIN (GABAPENTIN) [Concomitant]
     Active Substance: GABAPENTIN
  14. VASCEPA (ICOSAPENT) [Concomitant]
  15. GLIMEPIRIDE. [Concomitant]
     Active Substance: GLIMEPIRIDE
  16. METAXALONE (METAXALONE) [Concomitant]
     Active Substance: METAXALONE
  17. NYSTATIN W/TRIAMCINOLONE (NYSTATIN, TRIAMCINOLONE ACETONIDE) [Concomitant]
  18. TIZANIDINE (TIZANIDINE) [Concomitant]
     Active Substance: TIZANIDINE
  19. ASPIRIN (ASPIRIN) [Concomitant]
     Active Substance: ASPIRIN
  20. LORATADINE (LORATADINE) [Concomitant]

REACTIONS (2)
  - Alanine aminotransferase increased [None]
  - Aspartate aminotransferase increased [None]

NARRATIVE: CASE EVENT DATE: 20140310
